FAERS Safety Report 4428347-3 (Version None)
Quarter: 2004Q3

REPORT INFORMATION
  Report Type: 
  Country: None (occurrence: None)
  Receive Date: 20040818
  Receipt Date: 20040806
  Transmission Date: 20050211
  Serious: Yes (Hospitalization)
  Sender: FDA-Public Use
  Company Number: US-JNJFOC-20040504751

PATIENT
  Sex: Female
  Weight: 79.38 kg

DRUGS (8)
  1. INFLIXIMAB [Suspect]
     Indication: RHEUMATOID ARTHRITIS
     Route: 042
     Dates: start: 20010313, end: 20030301
  2. PROZAC [Concomitant]
  3. TRAZODONE [Concomitant]
     Dosage: AT BEDTIME
  4. NEURONTIN [Concomitant]
  5. METHOTREXATE [Concomitant]
  6. FOSAMAX [Concomitant]
  7. CALCIUM [Concomitant]
  8. FOLIC ACID [Concomitant]

REACTIONS (3)
  - BACTERAEMIA [None]
  - CHRONIC OBSTRUCTIVE AIRWAYS DISEASE [None]
  - ESCHERICHIA URINARY TRACT INFECTION [None]
